FAERS Safety Report 11046613 (Version 1)
Quarter: 2015Q2

REPORT INFORMATION
  Report Type: Spontaneous
  Country: US (occurrence: None)
  Receive Date: 20150417
  Receipt Date: 20150417
  Transmission Date: 20150821
  Serious: Yes (Death)
  Sender: FDA-Public Use
  Company Number: None

PATIENT
  Age: 57 Year
  Sex: Male

DRUGS (16)
  1. TRAMADOL (ULTRAM) [Concomitant]
  2. LIPITOR [Concomitant]
     Active Substance: ATORVASTATIN CALCIUM
  3. IPRATROPIUM (ATROVENT) [Concomitant]
  4. LETAIRIS [Suspect]
     Active Substance: AMBRISENTAN
     Indication: PULMONARY ARTERIAL HYPERTENSION
     Dates: start: 20150219, end: 20150222
  5. TBEC DR [Concomitant]
  6. FLUTICASONE (FLONASE) [Concomitant]
  7. SILDENAFIL (REVATIO) [Concomitant]
  8. FUROSEMIDE (LASIX) [Concomitant]
  9. HYDROCHLOROTHIAZIDE (ESIDRIX/HYDRODIURIL) [Concomitant]
  10. FLUTICASONE-SALMETEROL (ADVAIR DISKUS) [Concomitant]
  11. INHL DISK [Concomitant]
  12. SODIUM BICARBONATE-SODIUM CHLORIDE (AYR SINUS RINSE) [Concomitant]
  13. LISINOPRIL (PRINIVIL/ZESTRIL) [Concomitant]
  14. METFORMIN (GLUCOPHAGE) [Concomitant]
  15. ASPIRIN (ECOTRIN) [Concomitant]
  16. ALBUTEROL (PROAIR HFA) [Concomitant]

REACTIONS (6)
  - Troponin I increased [None]
  - Nausea [None]
  - Acute respiratory failure [None]
  - Vomiting [None]
  - Syncope [None]
  - Renal impairment [None]

NARRATIVE: CASE EVENT DATE: 20150226
